FAERS Safety Report 7470448-X (Version None)
Quarter: 2011Q2

REPORT INFORMATION
  Report Type: 
  Country: None (occurrence: None)
  Receive Date: 20110510
  Receipt Date: 20110427
  Transmission Date: 20111010
  Serious: Yes (Hospitalization)
  Sender: FDA-Public Use
  Company Number: CA-JNJFOC-20110412462

PATIENT
  Sex: Male

DRUGS (12)
  1. NAPROXEN [Concomitant]
  2. PREDNISONE [Concomitant]
  3. OMEPRAZOLE [Concomitant]
  4. REMICADE [Suspect]
     Route: 042
  5. WARFARIN [Concomitant]
  6. OXYCET [Concomitant]
  7. REMICADE [Suspect]
     Indication: RHEUMATOID ARTHRITIS
     Route: 042
  8. LEFLUNOMIDE [Concomitant]
  9. ALENDRONATE SODIUM [Concomitant]
  10. METOPROLOL SUCCINATE [Concomitant]
  11. ASPIRIN [Concomitant]
  12. KEFLEX [Concomitant]

REACTIONS (1)
  - MYOCARDIAL INFARCTION [None]
